FAERS Safety Report 20080412 (Version 1)
Quarter: 2021Q4

REPORT INFORMATION
  Report Type: Spontaneous
  Country: US (occurrence: None)
  Receive Date: 20211116
  Receipt Date: 20211116
  Transmission Date: 20220303
  Serious: No
  Sender: FDA-Public Use
  Company Number: None

PATIENT
  Sex: Female

DRUGS (22)
  1. AMBRISENTAN [Suspect]
     Active Substance: AMBRISENTAN
     Indication: Pulmonary arterial hypertension
     Dosage: FREQUENCY : DAILY;?
     Route: 048
  2. PANTOPRAZOLE SODIUM [Concomitant]
     Active Substance: PANTOPRAZOLE SODIUM
  3. CALCIUM [Concomitant]
     Active Substance: CALCIUM
  4. ASPIRIN 81 LOW DOSE [Concomitant]
  5. TADALAFIL [Concomitant]
     Active Substance: TADALAFIL
  6. METAMUCIL [Concomitant]
     Active Substance: PLANTAGO SEED
  7. METFORMIN HYDROCHLORIDE [Concomitant]
     Active Substance: METFORMIN HYDROCHLORIDE
  8. KEPPRA [Concomitant]
     Active Substance: LEVETIRACETAM
  9. VITAMIN D3 [Concomitant]
     Active Substance: CHOLECALCIFEROL
  10. LASIX [Concomitant]
     Active Substance: FUROSEMIDE
  11. POTASSIUM [Concomitant]
     Active Substance: POTASSIUM
  12. PROBIOTIC ACIDOPHILUS SUP [Concomitant]
  13. UPTRAVI [Concomitant]
     Active Substance: SELEXIPAG
  14. VITAMIN C [Concomitant]
     Active Substance: ASCORBIC ACID
  15. LIPITOR [Concomitant]
     Active Substance: ATORVASTATIN CALCIUM
  16. ARANESP ALBUMIN FREE [Concomitant]
  17. ARANESP ALBUMIN FREE [Concomitant]
  18. ZINC [Concomitant]
     Active Substance: ZINC
  19. MAGNESIUM [Concomitant]
     Active Substance: MAGNESIUM
  20. VITAMIN B12 [Concomitant]
     Active Substance: CYANOCOBALAMIN
  21. REMODULIN [Concomitant]
     Active Substance: TREPROSTINIL
  22. FOLIC ACID [Concomitant]
     Active Substance: FOLIC ACID

REACTIONS (3)
  - Time perception altered [None]
  - Insomnia [None]
  - Hot flush [None]
